FAERS Safety Report 10715240 (Version 3)
Quarter: 2016Q2

REPORT INFORMATION
  Report Type: Report from Study
  Country: HU (occurrence: HU)
  Receive Date: 20150116
  Receipt Date: 20160622
  Transmission Date: 20160815
  Serious: Yes (Hospitalization)
  Sender: FDA-Public Use
  Company Number: HU-ROCHE-1041660

PATIENT
  Age: 57 Year
  Sex: Female
  Weight: 68 kg

DRUGS (46)
  1. VINCRISTINE [Suspect]
     Active Substance: VINCRISTINE
     Indication: DIFFUSE LARGE B-CELL LYMPHOMA
     Dosage: LAST DOSE TAKEN; 2 MG DATE OF MOST RECENT DOSE PRIOR TO EVENT: 07/FEB/2012
     Route: 042
     Dates: start: 20120207
  2. PANTOPRAZOLE [Concomitant]
     Active Substance: PANTOPRAZOLE SODIUM
     Indication: CHRONIC GASTRITIS
     Dosage: 1X40 MG
     Route: 065
     Dates: start: 20120124
  3. VALSARTAN. [Concomitant]
     Active Substance: VALSARTAN
     Indication: HYPERTENSION
     Dosage: 1X80 MG
     Route: 065
     Dates: start: 20111201, end: 20120214
  4. DIMETINDENE [Concomitant]
     Active Substance: DIMETHINDENE
     Dosage: 1X4 MG
     Route: 065
     Dates: start: 20120214, end: 20120214
  5. DIMETINDENE [Concomitant]
     Active Substance: DIMETHINDENE
     Route: 065
     Dates: start: 20120524, end: 20120524
  6. PARACETAMOLUM [Concomitant]
     Route: 065
     Dates: start: 20120503, end: 20120503
  7. PARACETAMOLUM [Concomitant]
     Route: 065
     Dates: start: 20120614, end: 20120614
  8. ONDANSETRON [Concomitant]
     Active Substance: ONDANSETRON
     Indication: NAUSEA
     Dosage: 1X4 MG
     Route: 042
     Dates: start: 20120228, end: 20120228
  9. SUMETROLIM [Concomitant]
     Indication: PNEUMOCYSTIS JIROVECII PNEUMONIA
     Dosage: 2X2
     Route: 065
     Dates: start: 20120227, end: 20120807
  10. PARACETAMOLUM [Concomitant]
     Dosage: 1X1000 MG
     Route: 065
     Dates: start: 20120228, end: 20120228
  11. DOXORUBICIN [Suspect]
     Active Substance: DOXORUBICIN
     Indication: DIFFUSE LARGE B-CELL LYMPHOMA
     Dosage: LAST DOSE TAKEN; 84.5 MG DATE OF MOST RECENT DOSE PRIOR TO EVENT: 07/FEB/2012
     Route: 042
     Dates: start: 20120207
  12. KALIUM CHLORATUM [Concomitant]
     Active Substance: POTASSIUM CHLORIDE
     Route: 065
     Dates: start: 20120614, end: 20120618
  13. DIMETINDENE [Concomitant]
     Active Substance: DIMETHINDENE
     Route: 065
     Dates: start: 20120320, end: 20120320
  14. DIMETINDENE [Concomitant]
     Active Substance: DIMETHINDENE
     Route: 065
     Dates: start: 20120410, end: 20120410
  15. PARACETAMOLUM [Concomitant]
     Route: 065
     Dates: start: 20120320, end: 20120320
  16. METHYLPREDNISOLON [Concomitant]
     Active Substance: METHYLPREDNISOLONE
     Dosage: 1X80 MG
     Route: 042
     Dates: start: 20120207, end: 20120207
  17. METAMIZOLE SODIUM [Concomitant]
     Active Substance: METAMIZOLE SODIUM
     Indication: PYREXIA
     Dosage: 3X500 MG
     Route: 065
     Dates: start: 20120217, end: 20120219
  18. OBINUTUZUMAB [Suspect]
     Active Substance: OBINUTUZUMAB
     Indication: DIFFUSE LARGE B-CELL LYMPHOMA
     Dosage: VOLUME OF LAST OBINUTUZUMAB TAKEN: 250 ML, 4 MG/ML, MOST RECENT DOSE:14 FEB 2012
     Route: 042
     Dates: start: 20120207
  19. CYCLOPHOSPHAMIDE. [Suspect]
     Active Substance: CYCLOPHOSPHAMIDE
     Indication: DIFFUSE LARGE B-CELL LYMPHOMA
     Dosage: LAST DOSE TAKEN : 1267 MG, DATE OF MOST RECENT DOSE PRIOR TO EVENT: 07/FEB/2012
     Route: 042
     Dates: start: 20120207
  20. PREDNISONE. [Suspect]
     Active Substance: PREDNISONE
     Indication: DIFFUSE LARGE B-CELL LYMPHOMA
     Dosage: LAST DOSE TAKEN; 100MG DATE OF MOST RECENT DOSE PRIOR TO EVENT: 07/FEB/2012
     Route: 048
     Dates: start: 20120207
  21. DIMETINDENE [Concomitant]
     Active Substance: DIMETHINDENE
     Dosage: 1X4 MG
     Route: 065
     Dates: start: 20120228, end: 20120228
  22. DIMETINDENE [Concomitant]
     Active Substance: DIMETHINDENE
     Route: 065
     Dates: start: 20120503, end: 20120503
  23. PARACETAMOLUM [Concomitant]
     Route: 065
     Dates: start: 20120524, end: 20120524
  24. PREDNISOLON [Concomitant]
     Active Substance: PREDNISOLONE
     Indication: PREMEDICATION
     Dosage: 1X100 MG
     Route: 065
     Dates: start: 20120214, end: 20120214
  25. ALPRAZOLAM. [Concomitant]
     Active Substance: ALPRAZOLAM
     Indication: SLEEP DISORDER
     Dosage: 1X0.25 MG
     Route: 065
     Dates: start: 20111001
  26. ALLOPURINOL. [Concomitant]
     Active Substance: ALLOPURINOL
     Indication: HYPERURICAEMIA
     Route: 065
     Dates: start: 20120130, end: 20120807
  27. FLUCONAZOLE. [Concomitant]
     Active Substance: FLUCONAZOLE
     Indication: FUNGAL INFECTION
     Dosage: 1X100 MG
     Route: 065
     Dates: start: 20120227, end: 20120326
  28. KALIUM CHLORATUM [Concomitant]
     Active Substance: POTASSIUM CHLORIDE
     Indication: HYPOKALAEMIA
     Dosage: 2X600 MG
     Route: 065
     Dates: start: 20120228, end: 20120303
  29. DIMETINDENE [Concomitant]
     Active Substance: DIMETHINDENE
     Indication: PREMEDICATION
     Dosage: 1X4 MG
     Route: 065
     Dates: start: 20120207, end: 20120207
  30. ONDANSETRON [Concomitant]
     Active Substance: ONDANSETRON
     Route: 065
     Dates: start: 20120229, end: 20120229
  31. BROMHEXINE [Concomitant]
     Active Substance: BROMHEXINE
     Indication: COUGH
     Dosage: 3X8 MG
     Route: 065
     Dates: start: 20120217, end: 20120219
  32. SUMETROLIM [Concomitant]
     Route: 065
     Dates: start: 20121027, end: 20121030
  33. CIPROFLOXACIN. [Concomitant]
     Active Substance: CIPROFLOXACIN
     Indication: BACTERIAL INFECTION
     Dosage: 2X500 MG
     Route: 065
     Dates: start: 20120227, end: 20120326
  34. KALIUM CHLORATUM [Concomitant]
     Active Substance: POTASSIUM CHLORIDE
     Route: 065
     Dates: start: 20120524, end: 20120528
  35. PARACETAMOLUM [Concomitant]
     Route: 065
     Dates: start: 20120410, end: 20120410
  36. BROMHEXINE [Concomitant]
     Active Substance: BROMHEXINE
     Route: 065
     Dates: start: 20121030, end: 20121106
  37. RAMIPRIL. [Concomitant]
     Active Substance: RAMIPRIL
     Indication: HYPERTENSION
     Dosage: 2X5 MG
     Route: 065
     Dates: start: 20120214
  38. ENOXAPARINE SODIQUE [Concomitant]
     Active Substance: ENOXAPARIN SODIUM
     Indication: EMBOLISM
     Dosage: 1X60 MG
     Route: 065
     Dates: start: 20120130, end: 20120530
  39. KALIUM CHLORATUM [Concomitant]
     Active Substance: POTASSIUM CHLORIDE
     Route: 065
     Dates: start: 20120410, end: 20120414
  40. KALIUM CHLORATUM [Concomitant]
     Active Substance: POTASSIUM CHLORIDE
     Route: 065
     Dates: start: 20120503, end: 20120508
  41. PARACETAMOLUM [Concomitant]
     Dosage: 1X1000 MG
     Route: 065
     Dates: start: 20120214, end: 20120214
  42. NEBIVOLOL. [Concomitant]
     Active Substance: NEBIVOLOL
     Indication: HYPERTENSION
     Dosage: 1X5 MG
     Route: 065
     Dates: start: 20100601
  43. PANTOPRAZOLE [Concomitant]
     Active Substance: PANTOPRAZOLE SODIUM
     Indication: GASTROOESOPHAGEAL REFLUX DISEASE
  44. KALIUM CHLORATUM [Concomitant]
     Active Substance: POTASSIUM CHLORIDE
     Route: 065
     Dates: start: 20120320, end: 20120324
  45. DIMETINDENE [Concomitant]
     Active Substance: DIMETHINDENE
     Route: 065
     Dates: start: 20120614, end: 20120614
  46. PARACETAMOLUM [Concomitant]
     Indication: PREMEDICATION
     Dosage: 1X1000 MG
     Route: 065
     Dates: start: 20120207, end: 20120207

REACTIONS (2)
  - Febrile neutropenia [Recovered/Resolved]
  - Pneumonia [Recovered/Resolved]

NARRATIVE: CASE EVENT DATE: 20120219
